FAERS Safety Report 17003644 (Version 1)
Quarter: 2019Q4

REPORT INFORMATION
  Report Type: Spontaneous
  Country: FR (occurrence: FR)
  Receive Date: 20191107
  Receipt Date: 20191107
  Transmission Date: 20200122
  Serious: Yes (Hospitalization, Other)
  Sender: FDA-Public Use
  Company Number: FR-ACCORD-160206

PATIENT
  Age: 64 Year
  Sex: Female

DRUGS (3)
  1. CYTARABINE/CYTARABINE HYDROCHLORIDE/CYTARABINE OCFOSFATE [Suspect]
     Active Substance: CYTARABINE
     Indication: OCULAR LYMPHOMA
     Dosage: HIGH-DOSE
  2. RITUXIMAB. [Suspect]
     Active Substance: RITUXIMAB
     Indication: OCULAR LYMPHOMA
  3. METHOTREXATE. [Suspect]
     Active Substance: METHOTREXATE
     Indication: OCULAR LYMPHOMA
     Dosage: HIGH DOSE

REACTIONS (5)
  - Thrombocytopenia [Unknown]
  - Off label use [Unknown]
  - Sepsis [Unknown]
  - Dysarthria [Unknown]
  - Drug intolerance [Unknown]
